FAERS Safety Report 20996758 (Version 1)
Quarter: 2022Q2

REPORT INFORMATION
  Report Type: Spontaneous
  Country: US (occurrence: US)
  Receive Date: 20220623
  Receipt Date: 20220623
  Transmission Date: 20220721
  Serious: Yes (Other)
  Sender: FDA-Public Use
  Company Number: US-ENDO PHARMACEUTICALS INC-2022-003669

PATIENT
  Age: 62 Year
  Sex: Male
  Weight: 99.773 kg

DRUGS (7)
  1. TESTOPEL [Suspect]
     Active Substance: TESTOSTERONE
     Indication: Testicular failure
     Dosage: 750 MG, UNKNOWN (10 PELLETS, INSERTED ON HIS RIGHT SIDE OF HIS BACK, BELOW THE HIP)
     Dates: start: 20220208, end: 20220322
  2. TESTOPEL [Suspect]
     Active Substance: TESTOSTERONE
     Indication: Testicular failure
     Dosage: 750 MG, UNKNOWN (10 PELLETS, INSERTED ON HIS RIGHT SIDE OF HIS BACK, BELOW THE HIP)
     Dates: start: 20220208, end: 20220322
  3. TESTOPEL [Suspect]
     Active Substance: TESTOSTERONE
     Dosage: 750 MG, UNKNOWN  (10 PELLETS, INSERTED ON HIS RIGHT SIDE OF HIS BACK, BELOW THE HIP)
     Dates: start: 20220526
  4. TESTOPEL [Suspect]
     Active Substance: TESTOSTERONE
     Dosage: 750 MG, UNKNOWN  (10 PELLETS, INSERTED ON HIS RIGHT SIDE OF HIS BACK, BELOW THE HIP)
     Dates: start: 20220526
  5. TESTOPEL [Suspect]
     Active Substance: TESTOSTERONE
     Dosage: 750 MG, UNKNOWN (10 PELLETS, INSERTED ON HIS RIGHT SIDE OF HIS BACK, BELOW THE HIP)
     Dates: start: 20210928
  6. TESTOPEL [Suspect]
     Active Substance: TESTOSTERONE
     Dosage: 750 MG, UNKNOWN (10 PELLETS, INSERTED ON HIS RIGHT SIDE OF HIS BACK, BELOW THE HIP)
     Dates: start: 20210928
  7. BUDESONIDE [Concomitant]
     Active Substance: BUDESONIDE
     Indication: Product used for unknown indication
     Dosage: UNK UNKNOWN, UNKNOWN
     Route: 065

REACTIONS (5)
  - Infection [Unknown]
  - Implant site infection [Recovered/Resolved]
  - Wound dehiscence [Recovered/Resolved]
  - Device expulsion [Recovered/Resolved]
  - Off label use [Unknown]

NARRATIVE: CASE EVENT DATE: 20210928
